FAERS Safety Report 11105242 (Version 11)
Quarter: 2021Q3

REPORT INFORMATION
  Report Type: Spontaneous
  Country: SE (occurrence: SE)
  Receive Date: 20150511
  Receipt Date: 20210804
  Transmission Date: 20211014
  Serious: Yes (Death, Hospitalization)
  Sender: FDA-Public Use
  Company Number: SE-JNJFOC-20150504847

PATIENT
  Age: 5 Year
  Sex: Female

DRUGS (6)
  1. VALPROIC ACID. [Suspect]
     Active Substance: VALPROIC ACID
     Indication: SEIZURE
  2. VALPROIC ACID. [Suspect]
     Active Substance: VALPROIC ACID
     Indication: SEIZURE
  3. IBUPROFEN. [Suspect]
     Active Substance: IBUPROFEN
     Indication: PYREXIA
     Dosage: NORMAL DOSE
     Route: 065
  4. VALPROIC ACID. [Suspect]
     Active Substance: VALPROIC ACID
     Indication: MUSCLE SPASMS
     Route: 065
  5. VALPROIC ACID. [Suspect]
     Active Substance: VALPROIC ACID
     Indication: EPILEPSY
  6. VALPROIC ACID. [Suspect]
     Active Substance: VALPROIC ACID
     Indication: ELECTROENCEPHALOGRAM ABNORMAL

REACTIONS (4)
  - Ammonia increased [Fatal]
  - Hepatic failure [Fatal]
  - Brain oedema [Fatal]
  - Pyrexia [Fatal]
